FAERS Safety Report 17957668 (Version 1)
Quarter: 2020Q2

REPORT INFORMATION
  Report Type: Spontaneous
  Country: GB (occurrence: GB)
  Receive Date: 20200629
  Receipt Date: 20200629
  Transmission Date: 20200714
  Serious: Yes (Life-Threatening, Other)
  Sender: FDA-Public Use
  Company Number: GB-TEVA-2020-GB-1791904

PATIENT
  Age: 31 Year
  Sex: Male
  Weight: 99 kg

DRUGS (6)
  1. CLENIL MODULITE [Concomitant]
     Active Substance: BECLOMETHASONE DIPROPIONATE
     Dosage: 1-2 PUFFS TO BE TAKEN TWICE DAILY
     Dates: start: 20200521
  2. TRAMADOL. [Suspect]
     Active Substance: TRAMADOL
     Dosage: 100 MG
     Route: 065
     Dates: start: 20200527
  3. CETIRIZINE [Concomitant]
     Active Substance: CETIRIZINE HYDROCHLORIDE
     Dosage: 1 DOSAGE FORMS
     Dates: start: 20200521
  4. GLYCEROL [Concomitant]
     Active Substance: GLYCERIN
     Dosage: IF AND WHEN CONS... UNIT DOSE: 1 DOSAGE FORMS
     Dates: start: 20200521
  5. SODIUM CROMOGLICATE [Concomitant]
     Active Substance: CROMOLYN SODIUM
     Dosage: INSTIL 2-3 DROPS INO THE AFFECTED EYES PRN
     Dates: start: 20200521
  6. SALBUTAMOL [Concomitant]
     Active Substance: ALBUTEROL
     Dosage: 1-2 PUFFS WHEN REQUIRED UP TO FOUR TIMES DAILY
     Dates: start: 20200521

REACTIONS (1)
  - Urticaria [Not Recovered/Not Resolved]

NARRATIVE: CASE EVENT DATE: 20200604
